FAERS Safety Report 24423712 (Version 1)
Quarter: 2024Q4

REPORT INFORMATION
  Report Type: Spontaneous
  Country: US (occurrence: US)
  Receive Date: 20241010
  Receipt Date: 20241010
  Transmission Date: 20250114
  Serious: No
  Sender: ASCENDIS PHARMA
  Company Number: US-ASCENDIS PHARMA-2024US005185

PATIENT

DRUGS (1)
  1. SKYTROFA [Suspect]
     Active Substance: LONAPEGSOMATROPIN-TCGD
     Indication: Product used for unknown indication
     Dosage: 7.6 MG INJECTION ONCE A WEEK
     Route: 065

REACTIONS (2)
  - Lack of injection site rotation [Unknown]
  - Lipoatrophy [Unknown]

NARRATIVE: CASE EVENT DATE: 20240410
